FAERS Safety Report 6606491-X (Version None)
Quarter: 2010Q1

REPORT INFORMATION
  Report Type: 
  Country: None (occurrence: None)
  Receive Date: 20100226
  Receipt Date: 20100219
  Transmission Date: 20100710
  Serious: Yes (Other)
  Sender: FDA-Public Use
  Company Number: PHEH2010US02639

PATIENT
  Age: 68 Year
  Sex: Female

DRUGS (6)
  1. FEMARA [Suspect]
     Dosage: 2.5 MG, QD
     Route: 065
  2. AMLODIPINE [Concomitant]
     Dosage: UNK, UNK
     Route: 065
  3. ASPIRIN [Concomitant]
     Dosage: UNK, UNK
     Route: 065
  4. LEXAPRO [Concomitant]
     Dosage: UNK, UNK
     Route: 065
  5. OXYCONTIN [Concomitant]
     Dosage: UNK, UNK
     Route: 065
  6. OXYCODONE HCL [Concomitant]
     Dosage: UNK, UNK
     Route: 065

REACTIONS (2)
  - CONCOMITANT DISEASE AGGRAVATED [None]
  - ESSENTIAL TREMOR [None]
